FAERS Safety Report 8901480 (Version 1)
Quarter: 2012Q4

REPORT INFORMATION
  Report Type: 
  Country: US (occurrence: US)
  Receive Date: 20121109
  Receipt Date: 20121109
  Transmission Date: 20130627
  Serious: Yes (Hospitalization)
  Sender: FDA-Public Use
  Company Number: US-B.I. PHARMACEUTICALS,INC./RIDGEFIELD-2012-BP-27349BP

PATIENT
  Age: 67 Year
  Sex: Male

DRUGS (11)
  1. PRADAXA [Suspect]
     Indication: CEREBROVASCULAR ACCIDENT PROPHYLAXIS
     Dosage: 300 mg
     Route: 048
     Dates: start: 201112
  2. PRADAXA [Suspect]
     Indication: ATRIAL FIBRILLATION
  3. MULTAQ [Concomitant]
     Dosage: 800 mg
     Route: 048
     Dates: start: 201112
  4. INSULIN [Concomitant]
     Route: 058
     Dates: start: 201111
  5. METFORMIN [Concomitant]
     Indication: DIABETES MELLITUS
     Dosage: 2000 mg
     Route: 048
     Dates: start: 201007
  6. ASPIRIN [Concomitant]
     Dosage: 81 mg
     Route: 048
     Dates: start: 201112
  7. NITROGLYCERIN [Concomitant]
     Route: 048
     Dates: start: 201007
  8. FISH OIL [Concomitant]
  9. LIPITOR [Concomitant]
     Dosage: 40 mg
     Route: 048
     Dates: start: 20111230
  10. VIAGRA [Concomitant]
     Route: 048
  11. NIASPAN XL [Concomitant]
     Dosage: 1000 mg
     Route: 048
     Dates: start: 201111

REACTIONS (1)
  - Anaemia [Recovered/Resolved]
